FAERS Safety Report 9227480 (Version 1)
Quarter: 2013Q2

REPORT INFORMATION
  Report Type: Spontaneous
  Country: US (occurrence: None)
  Receive Date: 20130411
  Receipt Date: 20130411
  Transmission Date: 20140414
  Serious: Yes (Hospitalization)
  Sender: FDA-Public Use
  Company Number: None

PATIENT
  Age: 62 Year
  Sex: Male
  Weight: 100.6 kg

DRUGS (10)
  1. ASA [Suspect]
     Dosage: RECENT
     Route: 048
  2. ALEVE [Suspect]
     Indication: ARTHRITIS
     Dosage: 220MG Q8HR PRN PO ?RECENT
     Route: 048
  3. SKELAXIN [Concomitant]
  4. TRAMADOL [Concomitant]
  5. TRAMADOL [Concomitant]
  6. TRAZODONE [Concomitant]
  7. TRIBENZOR [Concomitant]
  8. METFORMIN [Concomitant]
  9. OMEPRAZOLE [Concomitant]
  10. BYSTOLIC [Concomitant]

REACTIONS (2)
  - Haemorrhagic anaemia [None]
  - Diverticulum intestinal haemorrhagic [None]
